FAERS Safety Report 8381650-7 (Version None)
Quarter: 2012Q2

REPORT INFORMATION
  Report Type: 
  Country: None (occurrence: None)
  Receive Date: 20120524
  Receipt Date: 20120511
  Transmission Date: 20120825
  Serious: No
  Sender: FDA-Public Use
  Company Number: US-ASTRAZENECA-2012SE30704

PATIENT
  Age: 61 Year
  Sex: Female

DRUGS (1)
  1. NEXIUM [Suspect]
     Route: 048

REACTIONS (6)
  - ACCIDENT [None]
  - FRACTURE [None]
  - PAIN [None]
  - OSTEOARTHRITIS [None]
  - CONDITION AGGRAVATED [None]
  - MUSCULOSKELETAL DISCOMFORT [None]
